FAERS Safety Report 17574709 (Version 4)
Quarter: 2020Q2

REPORT INFORMATION
  Report Type: Report from Study
  Country: None (occurrence: RU)
  Receive Date: 20200324
  Receipt Date: 20200629
  Transmission Date: 20200713
  Serious: Yes (Other)
  Sender: FDA-Public Use
  Company Number: RU-ABBVIE-20K-251-3327447-00

PATIENT
  Age: 39 Year
  Sex: Male
  Weight: 87 kg

DRUGS (4)
  1. LOPINAVIR/RITONAVIR [Suspect]
     Active Substance: LOPINAVIR\RITONAVIR
     Indication: HIV INFECTION
     Dosage: MEAN DAILY DOSE - 400/100 MG
     Route: 048
     Dates: start: 20180613, end: 20190712
  2. KALIDAVIR [Concomitant]
     Active Substance: LOPINAVIR\RITONAVIR
     Indication: HIV INFECTION
     Dosage: MEAN DAILY DOSE - 400/100 MG
     Dates: start: 20190712
  3. VIRFOTEN [Concomitant]
     Active Substance: TENOFOVIR\TENOFOVIR DISOPROXIL FUMARATE
     Indication: HIV INFECTION
     Dates: start: 20180813
  4. LAMIVUDINE. [Concomitant]
     Active Substance: LAMIVUDINE
     Indication: HIV INFECTION
     Dates: start: 20180813

REACTIONS (3)
  - CD4 lymphocytes decreased [Recovered/Resolved]
  - Drug abuse [Recovered/Resolved]
  - Alanine aminotransferase increased [Recovered/Resolved]

NARRATIVE: CASE EVENT DATE: 20200302
